FAERS Safety Report 4598765-1 (Version None)
Quarter: 2005Q1

REPORT INFORMATION
  Report Type: 
  Country: None (occurrence: None)
  Receive Date: 20050301
  Receipt Date: 20050216
  Transmission Date: 20050727
  Serious: Yes (Hospitalization)
  Sender: FDA-Public Use
  Company Number: 2005033362

PATIENT
  Age: 74 Year
  Sex: Male
  Weight: 78.9259 kg

DRUGS (2)
  1. LIPITOR [Suspect]
     Indication: BLOOD CHOLESTEROL
     Dosage: ORAL
     Route: 048
     Dates: end: 20050101
  2. LISINOPRIL [Concomitant]

REACTIONS (6)
  - FLATULENCE [None]
  - FREQUENT BOWEL MOVEMENTS [None]
  - HEART RATE INCREASED [None]
  - MUSCLE SPASMS [None]
  - NASOPHARYNGITIS [None]
  - PNEUMONIA [None]
